FAERS Safety Report 8525434-5 (Version None)
Quarter: 2012Q3

REPORT INFORMATION
  Report Type: 
  Country: None (occurrence: None)
  Receive Date: 20120710
  Receipt Date: 20120625
  Transmission Date: 20120928
  Serious: Yes (Hospitalization)
  Sender: FDA-Public Use
  Company Number: 1339494

PATIENT
  Age: 57 Year
  Sex: Male

DRUGS (5)
  1. (RITUXIMAB) [Concomitant]
  2. FLUDARABINE PHOSPHATE [Suspect]
     Indication: CHRONIC LYMPHOCYTIC LEUKAEMIA
     Dates: start: 20090103, end: 20091009
  3. FLUDARABINE PHOSPHATE [Suspect]
     Indication: CHRONIC LYMPHOCYTIC LEUKAEMIA
     Dates: start: 20110404
  4. CYCLOPHOSPHAMIDE [Suspect]
     Indication: CHRONIC LYMPHOCYTIC LEUKAEMIA
     Dates: start: 20110404
  5. CYCLOPHOSPHAMIDE [Suspect]
     Indication: CHRONIC LYMPHOCYTIC LEUKAEMIA
     Dates: start: 20090103, end: 20101009

REACTIONS (7)
  - IMMUNOSUPPRESSION [None]
  - HUMAN HERPESVIRUS 6 INFECTION [None]
  - NO THERAPEUTIC RESPONSE [None]
  - HISTIOCYTOSIS HAEMATOPHAGIC [None]
  - SPLENOMEGALY [None]
  - LYMPHADENOPATHY [None]
  - NEUTROPENIC SEPSIS [None]
